FAERS Safety Report 21680992 (Version 1)
Quarter: 2022Q4

REPORT INFORMATION
  Report Type: Spontaneous
  Country: US (occurrence: US)
  Receive Date: 20221205
  Receipt Date: 20221205
  Transmission Date: 20230113
  Serious: No
  Sender: FDA-Public Use
  Company Number: US-SA-SAC20221202000604

PATIENT
  Age: 42 Year
  Sex: Female
  Weight: 87 kg

DRUGS (1)
  1. DUPIXENT [Suspect]
     Active Substance: DUPILUMAB
     Indication: Dermatitis atopic
     Dosage: 300 MG, QOW
     Route: 058
     Dates: start: 20221003

REACTIONS (5)
  - Injection site rash [Recovered/Resolved]
  - Injection site urticaria [Recovered/Resolved]
  - Influenza [Recovered/Resolved]
  - Visual impairment [Recovered/Resolved]
  - Injection site pruritus [Recovered/Resolved]

NARRATIVE: CASE EVENT DATE: 20221101
